FAERS Safety Report 5971981-X (Version None)
Quarter: 2008Q4

REPORT INFORMATION
  Report Type: 
  Country: None (occurrence: None)
  Receive Date: 20081125
  Receipt Date: 20081107
  Transmission Date: 20090506
  Serious: Yes (Other)
  Sender: FDA-Public Use
  Company Number: SPI200800543

PATIENT
  Sex: Male

DRUGS (1)
  1. AMITIZA [Suspect]

REACTIONS (5)
  - ACCIDENTAL OVERDOSE [None]
  - DIARRHOEA [None]
  - HEADACHE [None]
  - METABOLIC ALKALOSIS [None]
  - WRONG DRUG ADMINISTERED [None]
